FAERS Safety Report 23318744 (Version 1)
Quarter: 2023Q4

REPORT INFORMATION
  Report Type: Spontaneous
  Country: US (occurrence: US)
  Receive Date: 20231220
  Receipt Date: 20231220
  Transmission Date: 20240110
  Serious: No
  Sender: FDA-Public Use
  Company Number: US-SANOFI-01878264

PATIENT
  Sex: Female

DRUGS (1)
  1. DUPIXENT [Suspect]
     Active Substance: DUPILUMAB
     Indication: Dermatitis atopic
     Dosage: 300 MG

REACTIONS (5)
  - Gait disturbance [Unknown]
  - Injection site discomfort [Unknown]
  - Injection site erythema [Not Recovered/Not Resolved]
  - Injection site swelling [Unknown]
  - Injection site pain [Not Recovered/Not Resolved]
